FAERS Safety Report 7527761-7 (Version None)
Quarter: 2011Q2

REPORT INFORMATION
  Report Type: 
  Country: None (occurrence: None)
  Receive Date: 20110607
  Receipt Date: 20110531
  Transmission Date: 20111010
  Serious: Yes (Hospitalization)
  Sender: FDA-Public Use
  Company Number: US-TEVA-283914USA

PATIENT
  Sex: Male
  Weight: 3.178 kg

DRUGS (1)
  1. PLAN B ONE-STEP [Suspect]
     Dosage: 1.5 MILLIGRAM;
     Route: 064
     Dates: start: 20100806, end: 20100806

REACTIONS (2)
  - HEART RATE DECREASED [None]
  - NEONATAL ASPIRATION [None]
